FAERS Safety Report 6904875-3 (Version None)
Quarter: 2010Q3

REPORT INFORMATION
  Report Type: 
  Country: None (occurrence: None)
  Receive Date: 20100804
  Receipt Date: 20090728
  Transmission Date: 20110219
  Serious: Yes (Other)
  Sender: FDA-Public Use
  Company Number: US-PFIZER INC-2009230950

PATIENT
  Sex: Female
  Weight: 90.703 kg

DRUGS (10)
  1. LYRICA [Suspect]
     Indication: PAIN IN EXTREMITY
     Dosage: 50 MG, 3X/DAY, EVERYDAY
     Route: 048
     Dates: start: 20090416, end: 20090101
  2. LANTUS [Concomitant]
     Dosage: UNK
     Route: 042
  3. BENICAR [Concomitant]
     Dosage: 40 MG, 1X/DAY
     Route: 048
  4. ZOCOR [Concomitant]
     Dosage: 10 MG, 1X/DAY
     Route: 048
  5. PREVACID [Concomitant]
     Dosage: 30 MG, 1X/DAY
     Route: 048
  6. HYDROCHLOROTHIAZIDE [Concomitant]
     Dosage: 0.5 MG, 1X/DAY
     Route: 048
  7. ACTONEL [Concomitant]
     Dosage: 35 MG, WEEKLY
     Route: 048
  8. BENTYL [Concomitant]
     Dosage: 10 MG, 3X/DAY
     Route: 048
  9. FELODIPINE [Concomitant]
     Dosage: 5 MG, 1X/DAY
     Route: 048
  10. HUMULIN R [Concomitant]
     Dosage: UNK
     Route: 042

REACTIONS (1)
  - DYSARTHRIA [None]
